FAERS Safety Report 5903119-9 (Version None)
Quarter: 2008Q3

REPORT INFORMATION
  Report Type: 
  Country: None (occurrence: None)
  Receive Date: 20080930
  Receipt Date: 20080919
  Transmission Date: 20090109
  Serious: Yes (Other)
  Sender: FDA-Public Use
  Company Number: JP-JNJFOC-20080902371

PATIENT
  Sex: Male

DRUGS (9)
  1. FINIBAX [Suspect]
     Indication: PNEUMONIA
     Route: 065
  2. METHOTREXATE [Suspect]
     Indication: DRUG USE FOR UNKNOWN INDICATION
     Route: 065
  3. EXAL [Suspect]
     Indication: DRUG USE FOR UNKNOWN INDICATION
     Route: 065
  4. DUROTEP [Concomitant]
     Route: 062
  5. LOXONIN [Concomitant]
     Route: 048
  6. PACIF [Concomitant]
     Route: 048
  7. NOVAMIN [Concomitant]
     Route: 048
  8. LANDSEN [Concomitant]
     Route: 048
  9. SERENACE [Concomitant]
     Route: 048

REACTIONS (1)
  - WHITE BLOOD CELL COUNT DECREASED [None]
